FAERS Safety Report 24345409 (Version 3)
Quarter: 2024Q4

REPORT INFORMATION
  Report Type: Spontaneous
  Country: US (occurrence: US)
  Receive Date: 20240920
  Receipt Date: 20241126
  Transmission Date: 20250114
  Serious: No
  Sender: Haleon PLC
  Company Number: US-HALEON-2197392

PATIENT
  Age: 28 Year

DRUGS (3)
  1. IBUPROFEN [Suspect]
     Active Substance: IBUPROFEN
     Indication: Product used for unknown indication
  2. SULFASALAZINE [Suspect]
     Active Substance: SULFASALAZINE
     Indication: Product used for unknown indication
  3. COSENTYX [Suspect]
     Active Substance: SECUKINUMAB
     Indication: Product used for unknown indication

REACTIONS (9)
  - Drug ineffective [Unknown]
  - Bursitis [Unknown]
  - Infrapatellar fat pad inflammation [Unknown]
  - Tenosynovitis [Unknown]
  - Foot deformity [Unknown]
  - Dactylitis [Unknown]
  - Tendonitis [Unknown]
  - Movement disorder [Unknown]
  - Prostatic specific antigen [Unknown]
